FAERS Safety Report 5396719-9 (Version None)
Quarter: 2007Q3

REPORT INFORMATION
  Report Type: 
  Country: None (occurrence: None)
  Receive Date: 20070718
  Receipt Date: 20060914
  Transmission Date: 20080115
  Serious: Yes (Hospitalization, Other)
  Sender: FDA-Public Use
  Company Number: 2006113593

PATIENT
  Sex: Female

DRUGS (17)
  1. CELEBREX [Suspect]
     Indication: FIBROMYALGIA
     Dosage: (200 MG), ORAL
     Route: 048
     Dates: end: 20051001
  2. HYDRALAZINE HCL [Concomitant]
  3. COZAAR [Concomitant]
  4. TOPROL-XL [Concomitant]
  5. HYDROCHLOROTHIAZIDE [Concomitant]
  6. CELEXA [Concomitant]
  7. LIPITOR [Concomitant]
  8. PROTONIX [Concomitant]
  9. NORVASC [Concomitant]
  10. NITROSTAT [Concomitant]
  11. NASONEX [Concomitant]
  12. KETOROLAC (KETOROLAC) [Concomitant]
  13. ALPHAGAN [Concomitant]
  14. OPHTHALMOLOGICALS (OPTHALMOLOGICALS) [Concomitant]
  15. PHRENILIN (BUTALBITAL, PARACETAMOL) [Concomitant]
  16. AMBIEN [Concomitant]
  17. ASPIRIN [Concomitant]

REACTIONS (5)
  - DYSPEPSIA [None]
  - FIBROMYALGIA [None]
  - FOOT FRACTURE [None]
  - NON-CARDIAC CHEST PAIN [None]
  - OEDEMA PERIPHERAL [None]
